FAERS Safety Report 17544005 (Version 1)
Quarter: 2020Q1

REPORT INFORMATION
  Report Type: Spontaneous
  Country: US (occurrence: US)
  Receive Date: 20200306
  Receipt Date: 20200306
  Transmission Date: 20200409
  Serious: Yes (Hospitalization)
  Sender: FDA-Public Use
  Company Number: None

PATIENT
  Age: 16 Year
  Sex: Male

DRUGS (4)
  1. VIGABATRIN 500MG PWD [Suspect]
     Active Substance: VIGABATRIN
     Indication: LENNOX-GASTAUT SYNDROME
     Route: 048
     Dates: start: 20180606
  2. DEPAKOTE SPR CAP [Concomitant]
  3. ATIVAN [Concomitant]
     Active Substance: LORAZEPAM
  4. DIASTAT PED GEL [Concomitant]

REACTIONS (3)
  - Pneumonia [None]
  - Seizure [None]
  - Sinusitis [None]

NARRATIVE: CASE EVENT DATE: 20200305
